FAERS Safety Report 18683171 (Version 1)
Quarter: 2020Q4

REPORT INFORMATION
  Report Type: Spontaneous
  Country: US (occurrence: US)
  Receive Date: 20201230
  Receipt Date: 20201230
  Transmission Date: 20210114
  Serious: No
  Sender: FDA-Public Use
  Company Number: US-ASTRAZENECA-2020SF61840

PATIENT
  Age: 30200 Day
  Sex: Female
  Weight: 54.4 kg

DRUGS (9)
  1. CALQUENCE [Suspect]
     Active Substance: ACALABRUTINIB
     Indication: CHRONIC LYMPHOCYTIC LEUKAEMIA
     Route: 048
     Dates: start: 20200827
  2. CALQUENCE [Suspect]
     Active Substance: ACALABRUTINIB
     Indication: LYMPHOMA
     Dosage: 100 MG EVERY OTHER DAY FOR 3 MORE DOSES
     Route: 048
     Dates: start: 20200919
  3. CALQUENCE [Suspect]
     Active Substance: ACALABRUTINIB
     Indication: LYMPHADENOPATHY
     Dosage: 100 MG EVERY OTHER DAY FOR 3 MORE DOSES
     Route: 048
     Dates: start: 20200919
  4. CALQUENCE [Suspect]
     Active Substance: ACALABRUTINIB
     Indication: LYMPHADENOPATHY
     Dosage: TAKE 2 DOSES EVERY OTHER DAY
     Route: 048
     Dates: start: 20200910
  5. CALQUENCE [Suspect]
     Active Substance: ACALABRUTINIB
     Indication: CHRONIC LYMPHOCYTIC LEUKAEMIA
     Dosage: TAKE 2 DOSES EVERY OTHER DAY
     Route: 048
     Dates: start: 20200910
  6. CALQUENCE [Suspect]
     Active Substance: ACALABRUTINIB
     Indication: LYMPHOMA
     Route: 048
     Dates: start: 20200827
  7. CALQUENCE [Suspect]
     Active Substance: ACALABRUTINIB
     Indication: LYMPHOMA
     Dosage: TAKE 2 DOSES EVERY OTHER DAY
     Route: 048
     Dates: start: 20200910
  8. CALQUENCE [Suspect]
     Active Substance: ACALABRUTINIB
     Indication: CHRONIC LYMPHOCYTIC LEUKAEMIA
     Dosage: 100 MG EVERY OTHER DAY FOR 3 MORE DOSES
     Route: 048
     Dates: start: 20200919
  9. CALQUENCE [Suspect]
     Active Substance: ACALABRUTINIB
     Indication: LYMPHADENOPATHY
     Route: 048
     Dates: start: 20200827

REACTIONS (11)
  - Skin laceration [Unknown]
  - Weight decreased [Not Recovered/Not Resolved]
  - Chest discomfort [Not Recovered/Not Resolved]
  - Product use issue [Not Recovered/Not Resolved]
  - Blood pressure decreased [Not Recovered/Not Resolved]
  - Impaired self-care [Not Recovered/Not Resolved]
  - Intentional product misuse [Not Recovered/Not Resolved]
  - Abdominal pain [Not Recovered/Not Resolved]
  - Heart rate irregular [Not Recovered/Not Resolved]
  - Asthenia [Not Recovered/Not Resolved]
  - Diarrhoea [Not Recovered/Not Resolved]

NARRATIVE: CASE EVENT DATE: 20200827
